FAERS Safety Report 8203381-6 (Version None)
Quarter: 2012Q1

REPORT INFORMATION
  Report Type: 
  Country: None (occurrence: None)
  Receive Date: 20120312
  Receipt Date: 20120306
  Transmission Date: 20120608
  Serious: Yes (Hospitalization)
  Sender: FDA-Public Use
  Company Number: US-ASTRAZENECA-2012SE06825

PATIENT
  Age: 53 Year
  Sex: Female

DRUGS (1)
  1. NEXIUM [Suspect]
     Route: 048

REACTIONS (7)
  - INJURY [None]
  - DRUG DOSE OMISSION [None]
  - CONCUSSION [None]
  - HEAD INJURY [None]
  - ACCIDENT [None]
  - ROAD TRAFFIC ACCIDENT [None]
  - PAIN [None]
